FAERS Safety Report 17302978 (Version 3)
Quarter: 2024Q2

REPORT INFORMATION
  Report Type: Spontaneous
  Country: HU (occurrence: HU)
  Receive Date: 20200122
  Receipt Date: 20240401
  Transmission Date: 20240715
  Serious: Yes (Death, Life-Threatening, Hospitalization, Other)
  Sender: FDA-Public Use
  Company Number: HU-SA-2019SA302679

PATIENT
  Age: 40 Year
  Sex: Male

DRUGS (2)
  1. LEVETIRACETAM [Suspect]
     Active Substance: LEVETIRACETAM
     Indication: Epilepsy
     Dosage: UNK
     Route: 065
  2. VALPROATE [Suspect]
     Active Substance: VALPROIC ACID
     Indication: Epilepsy
     Dosage: UNK
     Route: 065

REACTIONS (9)
  - Hyperammonaemia [Fatal]
  - Lactic acidosis [Fatal]
  - Circulatory collapse [Fatal]
  - Hyperkalaemia [Fatal]
  - Generalised tonic-clonic seizure [Fatal]
  - Brain oedema [Fatal]
  - Hypercapnia [Fatal]
  - Hyperammonaemic encephalopathy [Fatal]
  - Diabetes insipidus [Fatal]
